FAERS Safety Report 6372694-5 (Version None)
Quarter: 2009Q3

REPORT INFORMATION
  Report Type: 
  Country: None (occurrence: None)
  Receive Date: 20090924
  Receipt Date: 20090410
  Transmission Date: 20100115
  Serious: Yes (Hospitalization)
  Sender: FDA-Public Use
  Company Number: US-ASTRAZENECA-2008UW27473

PATIENT
  Sex: Female
  Weight: 77.1 kg

DRUGS (1)
  1. SEROQUEL [Suspect]
     Indication: ANXIETY DISORDER
     Dosage: 25 MG
     Route: 048
     Dates: start: 20060601, end: 20080801

REACTIONS (1)
  - TYPE 2 DIABETES MELLITUS [None]
